FAERS Safety Report 12837399 (Version 1)
Quarter: 2016Q4

REPORT INFORMATION
  Report Type: Spontaneous
  Country: IE (occurrence: IE)
  Receive Date: 20161011
  Receipt Date: 20161011
  Transmission Date: 20170207
  Serious: Yes (Hospitalization)
  Sender: FDA-Public Use
  Company Number: IE-ASTRAZENECA-2016SF05568

PATIENT
  Age: 7958 Day
  Sex: Male

DRUGS (3)
  1. WATER FOR INJECTION [Suspect]
     Active Substance: WATER
     Indication: MEDICATION DILUTION
     Route: 042
     Dates: start: 20160906
  2. SODIUM CHLORIDE. [Suspect]
     Active Substance: SODIUM CHLORIDE
     Indication: MEDICATION DILUTION
     Dosage: 0.9%W/V
     Route: 042
  3. MERONEM [Suspect]
     Active Substance: MEROPENEM
     Route: 042
     Dates: start: 20160906

REACTIONS (1)
  - Limb mass [Unknown]

NARRATIVE: CASE EVENT DATE: 20160906
